FAERS Safety Report 9607389 (Version 1)
Quarter: 2013Q4

REPORT INFORMATION
  Report Type: Spontaneous
  Country: US (occurrence: US)
  Receive Date: 20131009
  Receipt Date: 20131009
  Transmission Date: 20140711
  Serious: Yes (Other)
  Sender: FDA-Public Use
  Company Number: US-BAYER-2013-121806

PATIENT
  Age: 33 Year
  Sex: Female
  Weight: 111 kg

DRUGS (4)
  1. YASMIN [Suspect]
  2. NASAREL [Concomitant]
     Dosage: 29 ?G, 1 SPRAY IN EACH NOSTRIL 2 TIMES A DAY.
     Route: 045
  3. PROMETHEGAN [Concomitant]
     Indication: NAUSEA
     Dosage: 25 MG, 1 EVERY 6 HOURS AS NEEDED
     Route: 054
  4. PROMETHEGAN [Concomitant]
     Indication: VOMITING

REACTIONS (1)
  - Deep vein thrombosis [None]
